FAERS Safety Report 19066339 (Version 1)
Quarter: 2021Q1

REPORT INFORMATION
  Report Type: Spontaneous
  Country: NL (occurrence: NL)
  Receive Date: 20210328
  Receipt Date: 20210328
  Transmission Date: 20210420
  Serious: Yes (Hospitalization)
  Sender: FDA-Public Use
  Company Number: NL-TEVA-2021-NL-1894209

PATIENT
  Age: 66 Year
  Sex: Male
  Weight: 81 kg

DRUGS (5)
  1. CIPROFLOXACINE TABLET 500MG / BRAND NAME NOT SPECIFIED [Suspect]
     Active Substance: CIPROFLOXACIN
     Indication: PROSTATITIS
     Dosage: 1000 MILLIGRAM DAILY;
     Dates: start: 20210210, end: 20210224
  2. PANTOPRAZOL TABLET MSR 20MG / BRAND NAME NOT SPECIFIED [Concomitant]
     Active Substance: PANTOPRAZOLE
     Dosage: THERAPY START DATE :ASKU,THERAPY END DATE :ASKU
  3. TICAGRELOR TABLET 60MG / BRAND NAME NOT SPECIFIED [Concomitant]
     Dosage: THERAPY START DATE :ASKU,THERAPY END DATE :ASKU
  4. DUTASTERIDE / BRAND NAME NOT SPECIFIED [Concomitant]
     Dosage: THERAPY START DATE :ASKU,THERAPY END DATE :ASKU
  5. CARBASALAATCALCIUM POEDER 100MG / BRAND NAME NOT SPECIFIED [Concomitant]
     Dosage: THERAPY START DATE :ASKU,THERAPY END DATE :ASKU

REACTIONS (1)
  - Tubulointerstitial nephritis [Recovering/Resolving]

NARRATIVE: CASE EVENT DATE: 20210217
